FAERS Safety Report 6915134-7 (Version None)
Quarter: 2010Q3

REPORT INFORMATION
  Report Type: 
  Country: None (occurrence: None)
  Receive Date: 20100809
  Receipt Date: 20100804
  Transmission Date: 20110219
  Serious: Yes (Other)
  Sender: FDA-Public Use
  Company Number: AU-WYE-G06516610

PATIENT
  Sex: Male

DRUGS (1)
  1. TORISEL [Suspect]
     Indication: RENAL CELL CARCINOMA
     Dosage: UNKNOWN
     Dates: start: 20100127, end: 20100728

REACTIONS (3)
  - DISEASE PROGRESSION [None]
  - LUNG INFILTRATION [None]
  - PULMONARY TOXICITY [None]
